FAERS Safety Report 8165648-X (Version None)
Quarter: 2012Q1

REPORT INFORMATION
  Report Type: 
  Country: None (occurrence: None)
  Receive Date: 20120223
  Receipt Date: 20120223
  Transmission Date: 20120608
  Serious: Yes (Other)
  Sender: FDA-Public Use
  Company Number: None

PATIENT
  Sex: Female
  Weight: 122.4712 kg

DRUGS (1)
  1. LIPITOR [Suspect]
     Indication: BLOOD CHOLESTEROL
     Dosage: 1 TAB 1 X DAY BY MOUTH
     Route: 048
     Dates: start: 20120202

REACTIONS (3)
  - EYE PRURITUS [None]
  - FAECES DISCOLOURED [None]
  - PRURITUS [None]
